FAERS Safety Report 7110476-7 (Version None)
Quarter: 2010Q4

REPORT INFORMATION
  Report Type: 
  Country: None (occurrence: None)
  Receive Date: 20101118
  Receipt Date: 20101108
  Transmission Date: 20110411
  Serious: Yes (Hospitalization)
  Sender: FDA-Public Use
  Company Number: FR-GENENTECH-309622

PATIENT
  Sex: Female

DRUGS (14)
  1. MABTHERA [Suspect]
     Indication: RHEUMATOID ARTHRITIS
     Dosage: UNK
     Route: 042
     Dates: start: 20100605, end: 20100625
  2. METHOTREXATE [Suspect]
     Indication: RHEUMATOID ARTHRITIS
     Dosage: 25 MG, UNK
     Route: 048
     Dates: start: 20080901, end: 20100624
  3. METOJECT [Suspect]
     Indication: RHEUMATOID ARTHRITIS
     Dosage: 1 DF, UNK
     Route: 065
     Dates: start: 20100625, end: 20100924
  4. CORTANCYL [Concomitant]
     Indication: RHEUMATOID ARTHRITIS
     Dosage: UNK
  5. SPECIAFOLDINE [Concomitant]
     Indication: PRODUCT USED FOR UNKNOWN INDICATION
     Dosage: UNK
  6. DEROXAT [Concomitant]
     Indication: PRODUCT USED FOR UNKNOWN INDICATION
     Dosage: UNK
  7. DIFFU K [Concomitant]
     Indication: PRODUCT USED FOR UNKNOWN INDICATION
     Dosage: UNK
  8. FLUDEX [Concomitant]
     Indication: PRODUCT USED FOR UNKNOWN INDICATION
     Dosage: UNK
     Dates: end: 20100924
  9. FLUDEX [Concomitant]
     Dosage: UNK
     Dates: start: 20101001
  10. NEXIUM [Concomitant]
     Indication: PRODUCT USED FOR UNKNOWN INDICATION
     Dosage: UNK
  11. CACIT D3 [Concomitant]
     Indication: PRODUCT USED FOR UNKNOWN INDICATION
     Dosage: UNK
  12. COVERSYL [Concomitant]
     Indication: PRODUCT USED FOR UNKNOWN INDICATION
     Dosage: UNK
     Dates: end: 20100924
  13. COVERSYL [Concomitant]
     Dosage: UNK
     Dates: start: 20101001
  14. XATRAL [Concomitant]
     Indication: PRODUCT USED FOR UNKNOWN INDICATION
     Dosage: UNK

REACTIONS (1)
  - LUNG DISORDER [None]
